FAERS Safety Report 16367932 (Version 1)
Quarter: 2019Q2

REPORT INFORMATION
  Report Type: Spontaneous
  Country: US (occurrence: US)
  Receive Date: 20190422
  Receipt Date: 20190422
  Transmission Date: 20190711
  Serious: Yes (Life-Threatening, Hospitalization)
  Sender: FDA-Public Use
  Company Number: None

PATIENT
  Age: 46 Year
  Sex: Male
  Weight: 118.39 kg

DRUGS (2)
  1. INSULIN [Suspect]
     Active Substance: INSULIN NOS
     Indication: DIABETES MELLITUS
     Dosage: QD PRN
     Route: 058
     Dates: start: 20180607, end: 20180717
  2. INSULIN [Suspect]
     Active Substance: INSULIN NOS
     Dosage: ?          OTHER DOSE:SLIDING SCALEUNITS;?
     Route: 058
     Dates: start: 20180607

REACTIONS (6)
  - Lethargy [None]
  - Abdominal pain [None]
  - Diabetic ketoacidosis [None]
  - Mental status changes [None]
  - Suicidal ideation [None]
  - Hyperglycaemia [None]

NARRATIVE: CASE EVENT DATE: 20190111
